FAERS Safety Report 21198195 (Version 1)
Quarter: 2022Q3

REPORT INFORMATION
  Report Type: Spontaneous
  Country: RU (occurrence: RU)
  Receive Date: 20220811
  Receipt Date: 20220811
  Transmission Date: 20221027
  Serious: Yes (Life-Threatening)
  Sender: FDA-Public Use
  Company Number: RU-BIOGEN-2022BI01146027

PATIENT
  Age: 6 Year
  Sex: Male
  Weight: 17 kg

DRUGS (1)
  1. SPINRAZA [Suspect]
     Active Substance: NUSINERSEN
     Indication: Spinal muscular atrophy
     Dosage: 12 MILLIGRAMS (5 MILLILITERS)
     Route: 050
     Dates: start: 20210519, end: 20210519

REACTIONS (1)
  - Hyperthermia [Recovered/Resolved]

NARRATIVE: CASE EVENT DATE: 20210521
